FAERS Safety Report 5639216-5 (Version None)
Quarter: 2008Q1

REPORT INFORMATION
  Report Type: 
  Country: None (occurrence: None)
  Receive Date: 20080226
  Receipt Date: 20080218
  Transmission Date: 20080703
  Serious: Yes (Hospitalization)
  Sender: FDA-Public Use
  Company Number: DE-ASTRAZENECA-2008PK00363

PATIENT
  Age: 29156 Day
  Sex: Female

DRUGS (39)
  1. ATACAND [Suspect]
     Indication: HYPERTENSION
     Route: 048
     Dates: start: 20050306, end: 20050326
  2. NEXIUM [Suspect]
     Indication: PROPHYLAXIS AGAINST GASTROINTESTINAL ULCER
     Route: 048
     Dates: start: 20050306, end: 20050307
  3. NEXIUM [Suspect]
     Route: 048
     Dates: start: 20050309, end: 20050312
  4. NEXIUM [Suspect]
     Route: 048
     Dates: start: 20050323
  5. OMEP [Suspect]
     Indication: PROPHYLAXIS AGAINST GASTROINTESTINAL ULCER
     Route: 048
     Dates: start: 20050306, end: 20050306
  6. OMEP [Suspect]
     Route: 048
     Dates: start: 20050309, end: 20050322
  7. VOLTAREN RET [Suspect]
     Indication: PAIN
     Route: 048
     Dates: start: 20050306, end: 20050313
  8. MUSARIL [Suspect]
     Indication: SEDATION
     Route: 048
     Dates: start: 20050306, end: 20050313
  9. STILNOX [Suspect]
     Indication: INITIAL INSOMNIA
     Route: 048
     Dates: start: 20050306, end: 20050322
  10. FOSAMAX [Suspect]
     Indication: OSTEOPOROSIS
     Dates: start: 20050306, end: 20050326
  11. FRAXIPARIN [Suspect]
     Indication: THROMBOSIS PROPHYLAXIS
     Route: 058
     Dates: start: 20050307, end: 20050322
  12. DECORTIN [Suspect]
     Indication: PAIN
     Route: 048
     Dates: start: 20050307, end: 20050307
  13. DECORTIN [Suspect]
     Route: 048
     Dates: start: 20050309
  14. PASPERTIN [Suspect]
     Indication: NAUSEA
     Route: 048
     Dates: start: 20050312, end: 20050313
  15. PASPERTIN [Suspect]
     Route: 048
     Dates: start: 20050318, end: 20050321
  16. DIMENHYDRINATE [Suspect]
     Indication: NAUSEA
     Route: 054
     Dates: start: 20050313, end: 20050313
  17. TALVOSILEN FORTE [Suspect]
     Indication: PAIN
     Route: 048
     Dates: start: 20050316, end: 20050319
  18. TALVOSILEN FORTE [Suspect]
     Route: 048
     Dates: start: 20050321, end: 20050321
  19. PRACTO-CLYSS [Suspect]
     Indication: CONSTIPATION
     Route: 054
     Dates: start: 20050318, end: 20050318
  20. TARIVID [Suspect]
     Indication: URINARY TRACT INFECTION
     Route: 048
     Dates: start: 20050321, end: 20050325
  21. ASPIRIN [Concomitant]
     Indication: THROMBOSIS PROPHYLAXIS
     Route: 048
     Dates: start: 20050228, end: 20050228
  22. PREDNI H TABLINEN [Concomitant]
     Indication: PAIN
     Route: 048
     Dates: start: 20050228, end: 20050307
  23. BLOPRESS PLUS [Concomitant]
     Indication: HYPERTENSION
     Dosage: 8/12.5
     Route: 048
     Dates: start: 20050228, end: 20050307
  24. CALCIUM D3-RATIOPHARM [Concomitant]
     Indication: OSTEOPOROSIS
     Route: 048
     Dates: start: 20050228, end: 20050307
  25. VOLTAREN [Concomitant]
     Indication: PAIN
     Route: 048
     Dates: start: 20050306, end: 20050306
  26. CETIRIZIN [Concomitant]
     Indication: SKIN REACTION
     Route: 048
     Dates: start: 20050306, end: 20050306
  27. PREDNI TABLINEN [Concomitant]
     Indication: SKIN REACTION
     Route: 048
     Dates: start: 20050306, end: 20050306
  28. VALORON N RET [Concomitant]
     Indication: PAIN
     Route: 048
     Dates: start: 20050306, end: 20050311
  29. BLOPRESS [Concomitant]
     Indication: HYPERTENSION
     Route: 048
     Dates: start: 20050306, end: 20050306
  30. BLOPRESS [Concomitant]
     Route: 048
     Dates: start: 20050327
  31. CALCIVIT D [Concomitant]
     Indication: OSTEOPOROSIS
     Route: 048
     Dates: start: 20050307, end: 20050322
  32. CEFAZOLIN [Concomitant]
     Indication: ANTIBIOTIC PROPHYLAXIS
     Route: 042
     Dates: start: 20050308, end: 20050308
  33. OXAZEPAM [Concomitant]
     Indication: SEDATION
     Route: 048
     Dates: start: 20050309, end: 20050309
  34. OXAZEPAM [Concomitant]
     Route: 048
     Dates: start: 20050322, end: 20050322
  35. BIFITERAL SIRUP [Concomitant]
     Indication: CONSTIPATION
     Route: 048
     Dates: start: 20050317, end: 20050317
  36. FENISTIL RET [Concomitant]
     Indication: PRURITUS
     Route: 048
     Dates: start: 20050321
  37. THROMBOSESPRITZE [Concomitant]
     Indication: THROMBOSIS PROPHYLAXIS
     Route: 058
     Dates: start: 20050323, end: 20050327
  38. NITROFURANTOIN RET [Concomitant]
     Indication: URINARY TRACT INFECTION
     Route: 048
     Dates: start: 20050324, end: 20050327
  39. PARACETAMOL [Concomitant]
     Indication: PYREXIA
     Route: 048
     Dates: start: 20050327, end: 20050327

REACTIONS (1)
  - STEVENS-JOHNSON SYNDROME [None]
